FAERS Safety Report 9908939 (Version 1)
Quarter: 2014Q1

REPORT INFORMATION
  Report Type: Spontaneous
  Country: CA (occurrence: CA)
  Receive Date: 20140219
  Receipt Date: 20140219
  Transmission Date: 20141002
  Serious: Yes (Other)
  Sender: FDA-Public Use
  Company Number: CA-AMGEN-CANSP2014011095

PATIENT
  Age: 82 Year
  Sex: Female

DRUGS (4)
  1. PROLIA [Suspect]
     Indication: PRODUCT USED FOR UNKNOWN INDICATION
     Dosage: UNK
     Route: 065
     Dates: start: 201207
  2. BABY ASPIRIN [Concomitant]
  3. VITAMIN D                          /00107901/ [Concomitant]
  4. VITAMIN B12                        /00056201/ [Concomitant]

REACTIONS (6)
  - Uterine cancer [Unknown]
  - Syncope [Unknown]
  - Limb discomfort [Unknown]
  - Paraesthesia [Unknown]
  - Oedema peripheral [Unknown]
  - Pain in extremity [Unknown]
